FAERS Safety Report 8895024 (Version 1)
Quarter: 2012Q4

REPORT INFORMATION
  Report Type: 
  Country: US (occurrence: US)
  Receive Date: 20121107
  Receipt Date: 20121107
  Transmission Date: 20130627
  Serious: No
  Sender: FDA-Public Use
  Company Number: US-AMGEN-USASP2011057645

PATIENT
  Age: 64 Year
  Sex: Female

DRUGS (3)
  1. ENBREL [Suspect]
     Indication: RHEUMATOID ARTHRITIS
     Dosage: 50 mg, qwk
     Dates: start: 20041001
  2. PLAQUENIL                          /00072602/ [Concomitant]
  3. METHOTREXATE [Concomitant]

REACTIONS (5)
  - Weight decreased [Recovered/Resolved]
  - Stress [Recovered/Resolved]
  - Weight increased [Recovered/Resolved]
  - Spider vein [Not Recovered/Not Resolved]
  - Injection site induration [Not Recovered/Not Resolved]
